FAERS Safety Report 15703242 (Version 1)
Quarter: 2018Q4

REPORT INFORMATION
  Report Type: Spontaneous
  Country: US (occurrence: US)
  Receive Date: 20181209
  Receipt Date: 20181209
  Transmission Date: 20190205
  Serious: Yes (Other)
  Sender: FDA-Public Use
  Company Number: None

PATIENT
  Age: 43 Year
  Sex: Female
  Weight: 49.5 kg

DRUGS (1)
  1. VITRASE [Suspect]
     Active Substance: HYALURONIDASE, OVINE
     Indication: DERMAL FILLER INJECTION
     Route: 058
     Dates: start: 20181205, end: 20181205

REACTIONS (7)
  - Dizziness [None]
  - Chest discomfort [None]
  - Vision blurred [None]
  - Somnolence [None]
  - Headache [None]
  - Heart rate increased [None]
  - Nausea [None]

NARRATIVE: CASE EVENT DATE: 20181205
